FAERS Safety Report 6146704-4 (Version None)
Quarter: 2009Q2

REPORT INFORMATION
  Report Type: 
  Country: None (occurrence: None)
  Receive Date: 20090407
  Receipt Date: 20090330
  Transmission Date: 20091009
  Serious: Yes (Hospitalization)
  Sender: FDA-Public Use
  Company Number: PHHY2009CA11480

PATIENT
  Sex: Male

DRUGS (5)
  1. EXJADE [Suspect]
     Indication: IRON OVERLOAD
     Dosage: 2500 MG, QD
     Route: 048
     Dates: start: 20071031
  2. EXJADE [Suspect]
     Indication: SIDEROBLASTIC ANAEMIA
  3. METOPROLOL [Concomitant]
     Dosage: 200 MG/DAY
  4. RAMIPRIL [Concomitant]
     Dosage: 10 MG/DAY
  5. LASULIN [Concomitant]
     Dosage: 22 U, BID
     Route: 058

REACTIONS (2)
  - COUGH [None]
  - PNEUMONIA [None]
